FAERS Safety Report 4327895-4 (Version None)
Quarter: 2004Q1

REPORT INFORMATION
  Report Type: 
  Country: None (occurrence: None)
  Receive Date: 20040331
  Receipt Date: 20040202
  Transmission Date: 20041129
  Serious: Yes (Hospitalization)
  Sender: FDA-Public Use
  Company Number: FR-BRISTOL-MYERS SQUIBB COMPANY-12493219

PATIENT
  Age: 1 Day
  Sex: Male

DRUGS (2)
  1. VIDEX [Suspect]
     Route: 048
  2. COMBIVIR [Suspect]
     Route: 048

REACTIONS (9)
  - BLOOD LACTIC ACID INCREASED [None]
  - GASTROENTERITIS [None]
  - GROWTH RETARDATION [None]
  - HEPATIC ENZYME INCREASED [None]
  - HYPOTONIA [None]
  - HYPOTONIA NEONATAL [None]
  - LATE DEVELOPER [None]
  - MATERNAL DRUGS AFFECTING FOETUS [None]
  - URINARY TRACT INFECTION [None]
